FAERS Safety Report 9612972 (Version 7)
Quarter: 2014Q2

REPORT INFORMATION
  Report Type: Report from Study
  Country: US (occurrence: US)
  Receive Date: 20131010
  Receipt Date: 20140604
  Transmission Date: 20141212
  Serious: Yes (Death, Hospitalization)
  Sender: FDA-Public Use
  Company Number: US-ACTELION-A-US2013-89728

PATIENT
  Age: 62 Year
  Sex: Female

DRUGS (2)
  1. VENTAVIS [Suspect]
     Indication: PORTOPULMONARY HYPERTENSION
     Dosage: 5 MCG, 3-4X/DAY
     Route: 055
     Dates: start: 20080728, end: 20140504
  2. ADCIRCA [Concomitant]

REACTIONS (10)
  - Hepatic failure [Fatal]
  - Hepatic encephalopathy [Not Recovered/Not Resolved]
  - Mental status changes [Not Recovered/Not Resolved]
  - Hepatic cirrhosis [Not Recovered/Not Resolved]
  - Disease complication [Not Recovered/Not Resolved]
  - Blood glucose increased [Unknown]
  - Ascites [Recovering/Resolving]
  - Pneumonia [Recovering/Resolving]
  - Fluid retention [Recovered/Resolved]
  - Peripheral swelling [Recovered/Resolved]
